FAERS Safety Report 8974178 (Version 1)
Quarter: 2012Q4

REPORT INFORMATION
  Report Type: Spontaneous
  Country: GB (occurrence: None)
  Receive Date: 20121214
  Receipt Date: 20121214
  Transmission Date: 20130627
  Serious: Yes (Death, Other)
  Sender: FDA-Public Use
  Company Number: GB-ACCORD-015507

PATIENT
  Age: 75 Year
  Sex: Male
  Weight: 64 kg

DRUGS (33)
  1. SIMVASTATIN (SIMVASTATIN) [Suspect]
     Indication: HYPERCHOLESTERAEMIA
     Dosage: 40.00-MG-1.00 times Per-1.00Days  /  Oral
     Route: 048
     Dates: start: 20110704, end: 20121022
  2. MEROPENEM (MEROPENEM) [Suspect]
     Indication: ESCHERICHIA URINARY TRACT INFECTION
     Dosage: 1.00G-1.00 times Per-1.00Days  / Intravenous (not otherwise specified))
     Route: 042
     Dates: start: 20121021, end: 20121025
  3. SENNA (SENNA) [Concomitant]
  4. RANITIDINE (RANITIDINE) [Concomitant]
  5. METOCLOPRAMIDE (METOCLOPRAMIDE) [Concomitant]
  6. TRIMETHOPRIM (TRIMETHOPRIM) [Concomitant]
  7. HYDROCORTISONE (HYDROCORTISONE) [Concomitant]
  8. LACTULOSE (LACTULOSE) [Concomitant]
  9. PICOLAX (PICOLAX) [Concomitant]
  10. SALBUTOMOL (SALBUTAMOL) [Concomitant]
  11. HYOSCINE BUTYBROMIDE (HYOSCINE BUTYBROMIDE) [Concomitant]
  12. ZOPICLONE (ZOPICLONE) [Concomitant]
  13. MOVICOL [Concomitant]
  14. FINASTERIDE (FINASTERIDE) [Concomitant]
  15. DOXAZOSIN (DOXAZOSIN) [Concomitant]
  16. NEFOPAM (NEFOPAM) [Concomitant]
  17. DALTEPARIN SODIUM (DALTEPARIN SODIUM) UNKNOWN [Concomitant]
  18. HUMULIN (HUMULIN) [Concomitant]
  19. VITAMIN B COMPLEX (VITAMIN B COMPLEX) [Concomitant]
  20. DARBEPOETIN ALFA (DARBEPOETIN ALFA) [Concomitant]
  21. FUROSEMIDE (FUROSEMIDE) [Concomitant]
  22. AMLODIPINE (AMLODIPINE) [Concomitant]
  23. CYCLIZINE (CYCLIZINE) [Concomitant]
  24. PARACETAMOL (PARACETAMOL) [Concomitant]
  25. CLARITHROMYCIN (CLARITHROMYCIN) [Concomitant]
  26. IPRATROPIUM BROMIDE (IPRATROPIUM BROMIDE) [Concomitant]
  27. COLCHICINE (COLCHICINE) [Concomitant]
  28. NICORANDIL (NICORANDIL) [Concomitant]
  29. SEVELAMER (SEVELAMER) [Concomitant]
  30. OMACOR (OMACOR) [Concomitant]
  31. DOCUSATE SODIUM (DOCUSATE SODIUM) [Concomitant]
  32. FOLIC ACID (FOLIC ACID) [Concomitant]
  33. ASCORBIC ACID (ASCORBIC ACID) [Concomitant]

REACTIONS (2)
  - Myopathy [None]
  - Drug interaction [None]
